FAERS Safety Report 7880730-X (Version None)
Quarter: 2011Q4

REPORT INFORMATION
  Report Type: 
  Country: None (occurrence: None)
  Receive Date: 20111101
  Receipt Date: 20111021
  Transmission Date: 20120403
  Serious: Yes (Hospitalization, Other)
  Sender: FDA-Public Use
  Company Number: US-BAYER-2011-028514

PATIENT
  Age: 26 Year
  Sex: Female
  Weight: 81.633 kg

DRUGS (17)
  1. MAXALT [Concomitant]
     Indication: MIGRAINE
     Dosage: UNK
     Dates: start: 20010101
  2. NAPROXEN [Concomitant]
     Dosage: UNK
     Dates: start: 20080401
  3. ELAVIL [Concomitant]
  4. IMITREX [Concomitant]
     Indication: MIGRAINE
     Dosage: UNK
     Dates: start: 20010101
  5. TOPAMAX [Concomitant]
     Indication: MIGRAINE
     Dosage: UNK
     Dates: start: 20050101, end: 20101201
  6. AZITHROMYCIN [Concomitant]
     Indication: UNEVALUABLE EVENT
  7. YASMIN [Suspect]
     Indication: ORAL CONTRACEPTION
     Dosage: UNK
     Dates: start: 20071101, end: 20090201
  8. LORATADINE [Concomitant]
     Indication: HYPERSENSITIVITY
  9. GABAPENTIN [Concomitant]
     Indication: CONVULSION
     Dosage: UNK
     Dates: start: 20050101
  10. BACTRIM DS [Concomitant]
     Indication: URINARY TRACT INFECTION
     Dosage: UNK UNK, BID
     Route: 048
  11. LEVOFLOXACIN [Concomitant]
     Indication: URINARY TRACT INFECTION
     Dosage: 500 MG, UNK
     Route: 048
  12. CIPROFLOXACIN [Concomitant]
     Indication: URINARY TRACT INFECTION
     Dosage: 500 MG, BID
     Route: 048
  13. PORTIA-28 [Concomitant]
     Dosage: UNK
     Dates: start: 20090205, end: 20100115
  14. SUMATRIPTAN SUCCINATE [Concomitant]
     Indication: MIGRAINE
     Dosage: UNK
     Dates: start: 20010101
  15. MOTRIN [Concomitant]
     Dosage: UNK
     Dates: start: 20080401
  16. FLEXERIL [Concomitant]
     Indication: FIBROMYALGIA
     Dosage: UNK
     Dates: start: 20080401
  17. MULTI-VITAMIN [Concomitant]
     Indication: MEDICAL DIET

REACTIONS (10)
  - PAIN [None]
  - ANXIETY [None]
  - TACHYCARDIA [None]
  - GENERAL PHYSICAL HEALTH DETERIORATION [None]
  - CHEST PAIN [None]
  - PALPITATIONS [None]
  - ARRHYTHMIA [None]
  - CHEST DISCOMFORT [None]
  - EMOTIONAL DISTRESS [None]
  - MENTAL DISORDER [None]
